FAERS Safety Report 14203280 (Version 1)
Quarter: 2017Q4

REPORT INFORMATION
  Report Type: Spontaneous
  Country: JP (occurrence: JP)
  Receive Date: 20171120
  Receipt Date: 20171120
  Transmission Date: 20180321
  Serious: Yes (Other)
  Sender: FDA-Public Use
  Company Number: JP-ACCORD-061132

PATIENT
  Age: 70 Year
  Sex: Male

DRUGS (9)
  1. CISPLATIN. [Suspect]
     Active Substance: CISPLATIN
     Indication: DIFFUSE LARGE B-CELL LYMPHOMA
     Dosage: 110 MG DILUTED IN 500 ML 0.9% SALINE FOR 6 HOURS
     Route: 042
  2. RITUXIMAB. [Concomitant]
     Active Substance: RITUXIMAB
  3. VINCRISTINE [Concomitant]
     Active Substance: VINCRISTINE
  4. PREDNISONE. [Concomitant]
     Active Substance: PREDNISONE
  5. GEMCITABINE/GEMCITABINE HYDROCHLORIDE [Suspect]
     Active Substance: GEMCITABINE\GEMCITABINE HYDROCHLORIDE
     Indication: DIFFUSE LARGE B-CELL LYMPHOMA
     Dosage: DOSE: 1,500 MG DILUTED IN 250 ML 5% GLUCOSE FOR 2 HOURS
     Route: 042
  6. CYCLOPHOSPHAMIDE/CYCLOPHOSPHAMIDE MONOHYDRATE [Concomitant]
     Active Substance: CYCLOPHOSPHAMIDE
  7. DEXAMETHASONE. [Suspect]
     Active Substance: DEXAMETHASONE
     Indication: DIFFUSE LARGE B-CELL LYMPHOMA
     Dosage: 40 MG DILUTED IN 100 ML 0.9% SALINE FOR 30 MIN
     Route: 042
  8. DOXORUBICIN [Concomitant]
     Active Substance: DOXORUBICIN
  9. PIRARUBICIN [Concomitant]
     Active Substance: PIRARUBICIN

REACTIONS (5)
  - Skin necrosis [Recovered/Resolved]
  - Infusion site necrosis [None]
  - Infusion site erythema [None]
  - Infusion site pain [None]
  - Infusion site discolouration [None]
